FAERS Safety Report 4713829-7 (Version None)
Quarter: 2005Q3

REPORT INFORMATION
  Report Type: 
  Country: None (occurrence: None)
  Receive Date: 20050713
  Receipt Date: 20050623
  Transmission Date: 20060218
  Serious: Yes (Other)
  Sender: FDA-Public Use
  Company Number: USA0506101203

PATIENT
  Age: 78 Year
  Sex: Female

DRUGS (8)
  1. FORTEO [Suspect]
     Indication: OSTEOPOROSIS
     Dates: start: 20040201
  2. ZYPREXA [Suspect]
     Dosage: 5 MG
  3. BISOPROLOL W/HYDROCHLOROTHIAZIDE [Concomitant]
  4. XANAX [Concomitant]
  5. SYNTHROID [Concomitant]
  6. CARDIAZEM LA (DILTIAZEM  00489701/) [Concomitant]
  7. VASOTEC [Concomitant]
  8. ULTRAM [Concomitant]

REACTIONS (6)
  - BALANCE DISORDER [None]
  - BLOOD SODIUM DECREASED [None]
  - DIZZINESS [None]
  - FALL [None]
  - PHARMACEUTICAL PRODUCT COMPLAINT [None]
  - THERAPY NON-RESPONDER [None]
